FAERS Safety Report 20782208 (Version 1)
Quarter: 2022Q2

REPORT INFORMATION
  Report Type: Spontaneous
  Country: US (occurrence: US)
  Receive Date: 20220504
  Receipt Date: 20220504
  Transmission Date: 20220720
  Serious: No
  Sender: FDA-Public Use
  Company Number: US-BRISTOL-MYERS SQUIBB COMPANY-2022-019510

PATIENT
  Age: 70 Year
  Sex: Female

DRUGS (1)
  1. REVLIMID [Suspect]
     Active Substance: LENALIDOMIDE
     Indication: Anaemia
     Dosage: TAKE 1 CAPSULE BY MOUTH EVERY DAY FOR 3 WEEKS ON THEN 1 WEEK OFF.
     Route: 048
     Dates: start: 20210427

REACTIONS (1)
  - Adverse event [Unknown]
